FAERS Safety Report 6436345-3 (Version None)
Quarter: 2009Q4

REPORT INFORMATION
  Report Type: 
  Country: None (occurrence: None)
  Receive Date: 20091110
  Receipt Date: 20091110
  Transmission Date: 20100525
  Serious: Yes (Life-Threatening, Hospitalization, Disabling, Other)
  Sender: FDA-Public Use
  Company Number: None

PATIENT
  Sex: Female
  Weight: 65.7716 kg

DRUGS (1)
  1. NIGHTTIME DECONGESTANT TYLENOL [Suspect]
     Indication: SINUS CONGESTION
     Dosage: PER LABEL
     Dates: start: 20090204, end: 20090204

REACTIONS (1)
  - HAEMORRHAGIC STROKE [None]
